FAERS Safety Report 22115834 (Version 1)
Quarter: 2023Q1

REPORT INFORMATION
  Report Type: Spontaneous
  Country: US (occurrence: US)
  Receive Date: 20230320
  Receipt Date: 20230320
  Transmission Date: 20230417
  Serious: Yes (Other)
  Sender: FDA-Public Use
  Company Number: US-AMERICAN REGENT INC-2023000664

PATIENT
  Sex: Male

DRUGS (4)
  1. EPINEPHRINE [Suspect]
     Active Substance: EPINEPHRINE
     Indication: Septic shock
     Dosage: UNK
     Route: 065
  2. NOREPINEPHRINE [Suspect]
     Active Substance: NOREPINEPHRINE
     Indication: Septic shock
     Dosage: UNK
     Route: 065
  3. ANGIOTENSIN II [Suspect]
     Active Substance: ANGIOTENSIN II
     Indication: Septic shock
     Dosage: UNK
     Route: 065
  4. DOBUTAMINE [Suspect]
     Active Substance: DOBUTAMINE HYDROCHLORIDE
     Indication: Septic shock
     Dosage: UNK
     Route: 065

REACTIONS (2)
  - Peripheral ischaemia [Unknown]
  - Product use issue [Unknown]
